FAERS Safety Report 26192648 (Version 1)
Quarter: 2025Q4

REPORT INFORMATION
  Report Type: Spontaneous
  Country: AU (occurrence: AU)
  Receive Date: 20251223
  Receipt Date: 20251223
  Transmission Date: 20260118
  Serious: Yes (Other)
  Sender: CSL BEHRING
  Company Number: AU-BEH-2025229589

PATIENT
  Sex: Male

DRUGS (1)
  1. HUMAN IMMUNOGLOBULIN G [Suspect]
     Active Substance: HUMAN IMMUNOGLOBULIN G
     Indication: Plasma cell myeloma
     Dosage: 30 G (10G/100ML AND 20G/200ML)
     Route: 065

REACTIONS (8)
  - Oxygen saturation decreased [Unknown]
  - Febrile neutropenia [Unknown]
  - Nasopharyngitis [Unknown]
  - Chills [Unknown]
  - Tachycardia [Recovered/Resolved]
  - Atelectasis [Unknown]
  - Hypertension [Unknown]
  - Pleural effusion [Unknown]
